FAERS Safety Report 6310430-9 (Version None)
Quarter: 2009Q3

REPORT INFORMATION
  Report Type: 
  Country: None (occurrence: None)
  Receive Date: 20090814
  Receipt Date: 20090806
  Transmission Date: 20100115
  Serious: Yes (Other)
  Sender: FDA-Public Use
  Company Number: US-PFIZER INC-2009253229

PATIENT
  Age: 51 Year
  Sex: Female
  Weight: 89.357 kg

DRUGS (9)
  1. LIPITOR [Suspect]
     Indication: BLOOD CHOLESTEROL INCREASED
     Dosage: 40 MG, 1X/DAY
     Route: 048
     Dates: start: 20090731, end: 20090803
  2. THYROID TAB [Interacting]
     Indication: HYPOTHYROIDISM
     Dosage: 120 MG, 1X/DAY
     Route: 048
  3. CYTOMEL [Interacting]
     Indication: HYPOTHYROIDISM
     Dosage: 5 UG, 2X/DAY
     Route: 048
  4. METFORMIN [Concomitant]
     Indication: DIABETES MELLITUS
     Dosage: 1000 MG, 2X/DAY
     Route: 048
  5. SINGULAIR [Concomitant]
     Indication: ASTHMA
     Dosage: 10 MG, 1X/DAY
     Route: 048
  6. TOLAZAMIDE [Concomitant]
     Indication: DIABETES MELLITUS
     Dosage: 500 MG, 2X/DAY
     Route: 048
  7. FLUNISOLIDE [Concomitant]
     Indication: ASTHMA
     Dosage: TWO SPRAYS 2X/DAY
     Route: 045
  8. VITAMINS [Concomitant]
     Dosage: UNK
     Route: 048
  9. COMBIVENT [Concomitant]
     Indication: ASTHMA
     Dosage: UNK

REACTIONS (4)
  - CARDIAC FLUTTER [None]
  - DIZZINESS [None]
  - SWOLLEN TONGUE [None]
  - WEIGHT INCREASED [None]
